FAERS Safety Report 6638448-7 (Version None)
Quarter: 2010Q1

REPORT INFORMATION
  Report Type: 
  Country: None (occurrence: None)
  Receive Date: 20100316
  Receipt Date: 20100316
  Transmission Date: 20100710
  Serious: Yes (Other)
  Sender: FDA-Public Use
  Company Number: None

PATIENT
  Age: 81 Year
  Sex: Female
  Weight: 70.3075 kg

DRUGS (1)
  1. ALEVE [Suspect]
     Indication: PAIN
     Dosage: 200 MG ONCE BY MOUTH
     Route: 048
     Dates: start: 20100116

REACTIONS (4)
  - BLOOD BLISTER [None]
  - NAUSEA [None]
  - SKIN DISORDER [None]
  - VOMITING [None]
